FAERS Safety Report 17725753 (Version 1)
Quarter: 2020Q2

REPORT INFORMATION
  Report Type: Spontaneous
  Country: DE (occurrence: DE)
  Receive Date: 20200429
  Receipt Date: 20200429
  Transmission Date: 20200714
  Serious: Yes (Hospitalization, Other)
  Sender: FDA-Public Use
  Company Number: DE-GLAXOSMITHKLINE-DE2020GSK071264

PATIENT
  Age: 15 Year
  Sex: Male

DRUGS (1)
  1. CEFUROXIME. [Suspect]
     Active Substance: CEFUROXIME
     Indication: GASTROENTERITIS SALMONELLA
     Dosage: 100 MG/KG, 1D
     Route: 042

REACTIONS (1)
  - Pathogen resistance [Unknown]
